FAERS Safety Report 19051320 (Version 1)
Quarter: 2021Q1

REPORT INFORMATION
  Report Type: Spontaneous
  Country: US (occurrence: US)
  Receive Date: 20210324
  Receipt Date: 20210324
  Transmission Date: 20210420
  Serious: Yes (Life-Threatening)
  Sender: FDA-Public Use
  Company Number: None

PATIENT
  Age: 27 Year
  Sex: Female
  Weight: 81 kg

DRUGS (1)
  1. SINGULAIR [Suspect]
     Active Substance: MONTELUKAST SODIUM
     Indication: ASTHMA
     Dosage: ?          QUANTITY:1 TABLET(S);OTHER FREQUENCY:EVERY EVENING;?
     Route: 048
     Dates: start: 20210315, end: 20210319

REACTIONS (4)
  - Insomnia [None]
  - Energy increased [None]
  - Anxiety [None]
  - Suicidal ideation [None]

NARRATIVE: CASE EVENT DATE: 20210318
